FAERS Safety Report 24844522 (Version 5)
Quarter: 2025Q4

REPORT INFORMATION
  Report Type: Spontaneous
  Country: US (occurrence: US)
  Receive Date: 20250115
  Receipt Date: 20251126
  Transmission Date: 20260118
  Serious: Yes (Hospitalization, Other)
  Sender: SANOFI AVENTIS
  Company Number: US-SA-2024SA334556

PATIENT
  Age: 47 Year
  Sex: Female

DRUGS (2)
  1. DUPIXENT [Suspect]
     Active Substance: DUPILUMAB
     Indication: Neurodermatitis
     Dosage: 600 MG, 1X
     Route: 065
     Dates: start: 202408, end: 202408
  2. DUPIXENT [Suspect]
     Active Substance: DUPILUMAB
     Dosage: 300 MG, QOW
     Route: 065
     Dates: start: 2024

REACTIONS (12)
  - Thrombosis [Unknown]
  - Cerebrovascular accident [Unknown]
  - Nausea [Recovered/Resolved]
  - Abdominal distension [Recovered/Resolved]
  - Lacrimation increased [Unknown]
  - Fall [Unknown]
  - Thermal burn [Unknown]
  - Psoriasis [Unknown]
  - Skin swelling [Unknown]
  - Skin induration [Unknown]
  - Injection site inflammation [Unknown]
  - Eye pruritus [Unknown]
